FAERS Safety Report 15618193 (Version 10)
Quarter: 2020Q3

REPORT INFORMATION
  Report Type: Report from Study
  Country: US (occurrence: US)
  Receive Date: 20181114
  Receipt Date: 20200820
  Transmission Date: 20201102
  Serious: Yes (Hospitalization, Other)
  Sender: FDA-Public Use
  Company Number: US-ACTELION-A-NJ2018-174662

PATIENT
  Age: 47 Year
  Sex: Female
  Weight: 86.17 kg

DRUGS (4)
  1. OPSUMIT [Suspect]
     Active Substance: MACITENTAN
     Indication: PULMONARY ARTERIAL HYPERTENSION
     Dosage: 10 MG, QD
     Route: 048
  2. REVATIO [Concomitant]
     Active Substance: SILDENAFIL CITRATE
  3. OPSUMIT [Suspect]
     Active Substance: MACITENTAN
     Dosage: 10 MG, QD
     Route: 048
  4. TADALAFIL. [Suspect]
     Active Substance: TADALAFIL
     Indication: PRODUCT USED FOR UNKNOWN INDICATION
     Route: 065

REACTIONS (33)
  - Chest pain [Unknown]
  - Presyncope [Unknown]
  - Abdominal distension [Unknown]
  - Palpitations [Unknown]
  - Product dose omission issue [Unknown]
  - Diarrhoea [Unknown]
  - Dizziness [Unknown]
  - Oedema peripheral [Unknown]
  - Dialysis [Unknown]
  - Pyrexia [Unknown]
  - Dyspnoea exertional [Not Recovered/Not Resolved]
  - Ascites [Unknown]
  - Dizziness postural [Unknown]
  - Influenza like illness [Unknown]
  - Condition aggravated [Unknown]
  - Cough [Unknown]
  - Chest discomfort [Unknown]
  - Dyspnoea [Unknown]
  - Blood pressure abnormal [Unknown]
  - Unevaluable event [Unknown]
  - Feeling abnormal [Unknown]
  - Pulmonary arterial hypertension [Not Recovered/Not Resolved]
  - Seizure [Unknown]
  - Diverticulitis [Unknown]
  - Exercise tolerance decreased [Unknown]
  - Blood pressure decreased [Unknown]
  - Pelvic pain [Unknown]
  - Orthopnoea [Unknown]
  - Fatigue [Unknown]
  - Fall [Unknown]
  - Fluid retention [Unknown]
  - Dyspnoea at rest [Not Recovered/Not Resolved]
  - Bladder pain [Unknown]

NARRATIVE: CASE EVENT DATE: 2018
